FAERS Safety Report 8543804-6 (Version None)
Quarter: 2012Q3

REPORT INFORMATION
  Report Type: 
  Country: None (occurrence: None)
  Receive Date: 20120717
  Receipt Date: 20120628
  Transmission Date: 20120928
  Serious: Yes (Hospitalization, Other)
  Sender: FDA-Public Use
  Company Number: JPI-P-021926

PATIENT
  Age: 38 Year
  Sex: Female

DRUGS (8)
  1. VITAMIN B-12 [Concomitant]
  2. AMPHETAMINE, DEXTROAMPHETAMINE MIXED SALTS PSYCHOSTIMULANTS AND NOOTRO [Concomitant]
  3. XYREM [Suspect]
     Indication: NARCOLEPSY
     Dosage: 6 GM (3 GM, 2 IN 1 D, ORAL; UNK ORAL; 7.5 GM (3.75 GM, 2 IN 1 D), ORAL
     Route: 048
     Dates: start: 20090804
  4. XYREM [Suspect]
     Indication: NARCOLEPSY
     Dosage: 6 GM (3 GM, 2 IN 1 D, ORAL; UNK ORAL; 7.5 GM (3.75 GM, 2 IN 1 D), ORAL
     Route: 048
     Dates: start: 20120507
  5. VITAMIN D [Concomitant]
  6. ZOLPIDEM [Concomitant]
  7. OXYCODONE HCL [Concomitant]
  8. DULOXETINE HYDROCHLORIDE [Concomitant]

REACTIONS (15)
  - FIBROMYALGIA [None]
  - INTESTINAL OBSTRUCTION [None]
  - INSOMNIA [None]
  - VAGINAL PROLAPSE [None]
  - INITIAL INSOMNIA [None]
  - CONDITION AGGRAVATED [None]
  - UTERINE PROLAPSE [None]
  - HANGOVER [None]
  - ENDOMETRIOSIS [None]
  - RECTAL PROLAPSE [None]
  - BLADDER PROLAPSE [None]
  - POST PROCEDURAL INFECTION [None]
  - RESTLESSNESS [None]
  - ABNORMAL DREAMS [None]
  - DIARRHOEA [None]
